FAERS Safety Report 5707899-7 (Version None)
Quarter: 2008Q2

REPORT INFORMATION
  Report Type: 
  Country: None (occurrence: None)
  Receive Date: 20080417
  Receipt Date: 20080414
  Transmission Date: 20081010
  Serious: Yes (Hospitalization)
  Sender: FDA-Public Use
  Company Number: FR-WYE-G01395608

PATIENT
  Sex: Female

DRUGS (5)
  1. TAZOCILLINE [Suspect]
     Indication: NOSOCOMIAL INFECTION
     Route: 042
     Dates: start: 20080203, end: 20080204
  2. ROCEPHIN [Suspect]
     Indication: PNEUMONIA
     Route: 030
     Dates: start: 20080131, end: 20080202
  3. ROCEPHIN [Suspect]
     Indication: PYELONEPHRITIS
  4. AUGMENTIN '125' [Suspect]
     Indication: PNEUMONIA
     Route: 048
     Dates: start: 20080128, end: 20080130
  5. AUGMENTIN '125' [Suspect]
     Indication: PYELONEPHRITIS

REACTIONS (4)
  - EXFOLIATIVE RASH [None]
  - RASH ERYTHEMATOUS [None]
  - RASH PRURITIC [None]
  - STOMATITIS [None]
